FAERS Safety Report 25915705 (Version 2)
Quarter: 2025Q4

REPORT INFORMATION
  Report Type: Spontaneous
  Country: JP (occurrence: JP)
  Receive Date: 20251013
  Receipt Date: 20251027
  Transmission Date: 20260117
  Serious: Yes (Death)
  Sender: INCYTE
  Company Number: JP-002147023-NVSJ2025JP009976

PATIENT
  Age: 36 Year

DRUGS (1)
  1. RUXOLITINIB [Suspect]
     Active Substance: RUXOLITINIB
     Indication: Acute graft versus host disease
     Dosage: 10 MG

REACTIONS (2)
  - Graft versus host disease [Fatal]
  - Disease recurrence [Fatal]
